FAERS Safety Report 5635894-5 (Version None)
Quarter: 2008Q1

REPORT INFORMATION
  Report Type: 
  Country: None (occurrence: None)
  Receive Date: 20080221
  Receipt Date: 20080213
  Transmission Date: 20080703
  Serious: Yes (Life-Threatening, Hospitalization)
  Sender: FDA-Public Use
  Company Number: TCI2007A07053

PATIENT
  Age: 81 Year
  Sex: Female

DRUGS (7)
  1. ACTOS [Suspect]
     Indication: TYPE 2 DIABETES MELLITUS
     Dosage: 15 MG (15 MG, 1 IN 1 D) PER ORAL
     Route: 048
     Dates: start: 20041110, end: 20071218
  2. CALBLOCK (AZELNIDIPINE) [Suspect]
     Indication: HYPERTENSION
     Dosage: 16 MG (16 MG, 1 IN 1 D) PER ORAL
     Route: 048
     Dates: start: 20060506, end: 20071218
  3. PRAVASTATIN [Concomitant]
  4. OLMESARTAN MEDOXOMIL [Concomitant]
  5. DAONIL (GLIBENCLAMIDE) [Concomitant]
  6. NIFEDIPINE [Concomitant]
  7. DETANTOL R (BUNAZOSIN HYDROCHLORIDE) [Concomitant]

REACTIONS (16)
  - ACUTE MYOCARDIAL INFARCTION [None]
  - ACUTE PULMONARY OEDEMA [None]
  - CARDIAC FAILURE CONGESTIVE [None]
  - CARDIOMEGALY [None]
  - CORONARY ARTERY DISEASE [None]
  - COUGH [None]
  - DILATATION VENTRICULAR [None]
  - DYSPNOEA [None]
  - EJECTION FRACTION DECREASED [None]
  - GENERALISED OEDEMA [None]
  - LEFT ATRIAL DILATATION [None]
  - MALAISE [None]
  - ORTHOPNOEA [None]
  - RALES [None]
  - TROPONIN T INCREASED [None]
  - VENTRICULAR HYPOKINESIA [None]
